FAERS Safety Report 4619259-0 (Version None)
Quarter: 2005Q2

REPORT INFORMATION
  Report Type: 
  Country: None (occurrence: None)
  Receive Date: 20050321
  Receipt Date: 20030624
  Transmission Date: 20051028
  Serious: Yes (Other)
  Sender: FDA-Public Use
  Company Number: 2003-06-3233

PATIENT
  Age: 36 Year
  Sex: Male

DRUGS (5)
  1. PEG-INTRON [Suspect]
     Indication: HEPATITIS C
     Dosage: 150 MCG QWK, SUBCUTANEOUS
     Route: 058
     Dates: start: 20021021
  2. REBETOL [Suspect]
     Indication: HEPATITIS C
     Dosage: 800 MG QD ORAL
     Route: 048
     Dates: start: 20021021
  3. VIAGRA [Concomitant]
  4. AFRIN (PSEUDOEPHEDRINE SULFATE) [Concomitant]
  5. ALEVE [Concomitant]

REACTIONS (9)
  - DIARRHOEA [None]
  - HEART RATE INCREASED [None]
  - HEAT EXPOSURE INJURY [None]
  - HYPERHIDROSIS [None]
  - HYPERTHYROIDISM [None]
  - HYPOTHYROIDISM [None]
  - MYALGIA [None]
  - RESPIRATORY DISORDER [None]
  - WEIGHT DECREASED [None]
